FAERS Safety Report 7518227-9 (Version None)
Quarter: 2011Q2

REPORT INFORMATION
  Report Type: 
  Country: None (occurrence: None)
  Receive Date: 20110531
  Receipt Date: 20110531
  Transmission Date: 20111010
  Serious: No
  Sender: FDA-Public Use
  Company Number: None

PATIENT
  Sex: Male
  Weight: 103 kg

DRUGS (2)
  1. XELODA [Suspect]
     Indication: COLON CANCER
     Dosage: 200 MG (4 TABLETS) TWICE DAILY X 14 BY MOUTH
     Route: 048
     Dates: start: 20110401
  2. XELODA [Suspect]
     Indication: COLON CANCER
     Dosage: 200 MG (4 TABLETS) TWICE DAILY X 14 BY MOUTH
     Route: 048
     Dates: start: 20100701, end: 20100901

REACTIONS (4)
  - GASTRIC DISORDER [None]
  - MUSCLE SPASMS [None]
  - PALMAR-PLANTAR ERYTHRODYSAESTHESIA SYNDROME [None]
  - APHAGIA [None]
